FAERS Safety Report 22759207 (Version 3)
Quarter: 2023Q4

REPORT INFORMATION
  Report Type: Spontaneous
  Country: JP (occurrence: JP)
  Receive Date: 20230728
  Receipt Date: 20231204
  Transmission Date: 20240109
  Serious: Yes (Other)
  Sender: FDA-Public Use
  Company Number: JP-ONO-2023JP019020

PATIENT
  Age: 79 Year
  Sex: Male
  Weight: 68.8 kg

DRUGS (6)
  1. OPDIVO [Suspect]
     Active Substance: NIVOLUMAB
     Indication: Metastatic renal cell carcinoma
     Dosage: UNK
     Route: 041
     Dates: start: 20230418, end: 20230515
  2. CABOZANTINIB S-MALATE [Suspect]
     Active Substance: CABOZANTINIB S-MALATE
     Indication: Metastatic renal cell carcinoma
     Dosage: UNK
     Route: 048
     Dates: start: 20230418, end: 20230529
  3. CARBOCYSTEINE [Concomitant]
     Active Substance: CARBOCYSTEINE
     Indication: Product used for unknown indication
     Dosage: ORAL DRUG UNSPECIFIED FORM, 500 MG, Q8H
     Route: 048
  4. AMLODIPINE [Concomitant]
     Active Substance: AMLODIPINE BESYLATE
     Indication: Product used for unknown indication
     Dosage: ORAL DRUG UNSPECIFIED FORM, 10 MG, EVERYDAY
     Route: 048
  5. AZILSARTAN KAMEDOXOMIL [Concomitant]
     Active Substance: AZILSARTAN KAMEDOXOMIL
     Indication: Product used for unknown indication
     Dosage: 20 MG, EVERYDAY (ORAL DRUG UNSPECIFIED FORM)
     Route: 048
  6. CALCIUM CARBONATE\CHOLECALCIFEROL\MAGNESIUM CARBONATE [Concomitant]
     Active Substance: CALCIUM CARBONATE\CHOLECALCIFEROL\MAGNESIUM CARBONATE
     Indication: Product used for unknown indication
     Dosage: EVERYDAY
     Route: 048

REACTIONS (4)
  - Proteinuria [Not Recovered/Not Resolved]
  - Immune-mediated enterocolitis [Recovering/Resolving]
  - Oedema peripheral [Not Recovered/Not Resolved]
  - Malaise [Unknown]

NARRATIVE: CASE EVENT DATE: 20230529
